FAERS Safety Report 5976258-4 (Version None)
Quarter: 2008Q4

REPORT INFORMATION
  Report Type: 
  Country: None (occurrence: None)
  Receive Date: 20081202
  Receipt Date: 20081124
  Transmission Date: 20090506
  Serious: Yes (Hospitalization)
  Sender: FDA-Public Use
  Company Number: FR-WYE-G02631708

PATIENT
  Sex: Male

DRUGS (2)
  1. TORISEL [Suspect]
     Dosage: 25 MG EVERY 1 CYC
     Route: 042
     Dates: start: 20080605, end: 20080807
  2. AVASTIN [Concomitant]
     Dosage: 710 MG EVERY 1 CYC
     Route: 042
     Dates: start: 20080605, end: 20080831

REACTIONS (1)
  - GENERAL PHYSICAL HEALTH DETERIORATION [None]
